FAERS Safety Report 24939283 (Version 2)
Quarter: 2025Q1

REPORT INFORMATION
  Report Type: Report from Study
  Country: BE (occurrence: BE)
  Receive Date: 20250206
  Receipt Date: 20250225
  Transmission Date: 20250408
  Serious: Yes (Hospitalization, Other)
  Sender: JOHNSON AND JOHNSON
  Company Number: BE-JNJFOC-20250185496

PATIENT
  Age: 71 Year
  Sex: Female
  Weight: 96 kg

DRUGS (11)
  1. RYBREVANT [Suspect]
     Active Substance: AMIVANTAMAB-VMJW
     Indication: Metastasis
     Route: 065
     Dates: start: 20230925
  2. BUDESONIDE\FORMOTEROL\GLYCOPYRRONIUM [Concomitant]
     Active Substance: BUDESONIDE\FORMOTEROL\GLYCOPYRRONIUM
     Indication: Asthma
  3. ESOMEPRAZOLE MAGNESIUM [Concomitant]
     Active Substance: ESOMEPRAZOLE MAGNESIUM
  4. DESLORATADINE [Concomitant]
     Active Substance: DESLORATADINE
     Indication: Hypersensitivity
  5. POLYETHYLENE GLYCOL 3350\POTASSIUM CHLORIDE\SODIUM BICARBONATE\SODIUM [Concomitant]
     Active Substance: POLYETHYLENE GLYCOL 3350\POTASSIUM CHLORIDE\SODIUM BICARBONATE\SODIUM CHLORIDE
     Indication: Constipation
  6. IBUPROFEN [Concomitant]
     Active Substance: IBUPROFEN
     Indication: Bone pain
  7. MOTILIUM [Concomitant]
     Active Substance: DOMPERIDONE
     Indication: Nausea
  8. BETAHISTINE [Concomitant]
     Active Substance: BETAHISTINE
     Indication: Vertigo
  9. DVITAL [Concomitant]
     Indication: Metastases to bone
  10. CRESTOR [Concomitant]
     Active Substance: ROSUVASTATIN CALCIUM
     Indication: Blood cholesterol increased
  11. XGEVA [Concomitant]
     Active Substance: DENOSUMAB
     Indication: Metastases to bone

REACTIONS (15)
  - Bronchitis [Recovered/Resolved]
  - Cataract [Unknown]
  - Lymphoedema [Not Recovered/Not Resolved]
  - Constipation [Not Recovered/Not Resolved]
  - Inflammation [Unknown]
  - Rash [Recovering/Resolving]
  - Contusion [Unknown]
  - Myositis [Unknown]
  - Dyspnoea [Recovering/Resolving]
  - Fatigue [Not Recovered/Not Resolved]
  - Dry skin [Not Recovered/Not Resolved]
  - Rash [Unknown]
  - Stomatitis [Unknown]
  - Myalgia [Recovered/Resolved]
  - Inflammation of wound [Unknown]
